FAERS Safety Report 13337187 (Version 1)
Quarter: 2017Q1

REPORT INFORMATION
  Report Type: Spontaneous
  Country: US (occurrence: US)
  Receive Date: 20170315
  Receipt Date: 20170315
  Transmission Date: 20170428
  Serious: No
  Sender: FDA-Public Use
  Company Number: US-BAYER-2017-049383

PATIENT
  Sex: Male

DRUGS (12)
  1. NAMENDA [Concomitant]
     Active Substance: MEMANTINE HYDROCHLORIDE
     Dosage: 1 DF, BID
     Route: 048
     Dates: start: 20161018
  2. FLOMAX [Concomitant]
     Active Substance: TAMSULOSIN HYDROCHLORIDE
     Dosage: 1 CAP BY MOUTH DAILY
     Dates: start: 20161201
  3. LASIX [Concomitant]
     Active Substance: FUROSEMIDE
     Dosage: 1 DF, BID
     Route: 048
     Dates: start: 20160315
  4. NITROSTAT [Concomitant]
     Active Substance: NITROGLYCERIN
     Indication: CHEST PAIN
     Dosage: 1 DF, EVERY 6 HOURS
     Route: 060
     Dates: start: 20160707
  5. CLARITIN [Suspect]
     Active Substance: LORATADINE
  6. COUMADIN [Concomitant]
     Active Substance: WARFARIN SODIUM
     Dosage: 1 TAB BY MOUTH DAILY AT 6PM
     Route: 048
     Dates: start: 20160818
  7. PLAVIX [Concomitant]
     Active Substance: CLOPIDOGREL BISULFATE
     Dosage: 1 DF, QD
     Route: 048
     Dates: start: 20160315
  8. LISINOPRIL. [Concomitant]
     Active Substance: LISINOPRIL
     Dosage: 0.5 TAB BY MOUTH DAILY
     Dates: start: 20161128
  9. ISOSORBIDE MONONITRATE. [Concomitant]
     Active Substance: ISOSORBIDE MONONITRATE
     Dosage: 1 TAB BY MOUTH DAILY
     Dates: start: 20161128
  10. LIPITOR [Concomitant]
     Active Substance: ATORVASTATIN CALCIUM
     Dosage: 1 TAB BY MOUTH AT BED TIME
     Route: 048
     Dates: start: 20160315
  11. MAGNESIUM OXIDE. [Concomitant]
     Active Substance: MAGNESIUM OXIDE
     Dosage: 400 MG, QD
     Route: 048
  12. TIKOSYN [Concomitant]
     Active Substance: DOFETILIDE
     Dosage: 1 CAP, EVERY 12 HOURS
     Route: 048
     Dates: start: 201612

REACTIONS (1)
  - Drug hypersensitivity [None]
